FAERS Safety Report 5854532-X (Version None)
Quarter: 2008Q3

REPORT INFORMATION
  Report Type: 
  Country: None (occurrence: None)
  Receive Date: 20080822
  Receipt Date: 20070914
  Transmission Date: 20090109
  Serious: No
  Sender: FDA-Public Use
  Company Number: US-ABBOTT-07P-163-0417213-00

PATIENT
  Sex: Female
  Weight: 59.02 kg

DRUGS (1)
  1. SYNTHROID [Suspect]
     Indication: HYPOTHYROIDISM
     Route: 048
     Dates: start: 20070914, end: 20070914

REACTIONS (3)
  - CHEST DISCOMFORT [None]
  - EAR CONGESTION [None]
  - HYPERSENSITIVITY [None]
